FAERS Safety Report 4488141-4 (Version None)
Quarter: 2004Q4

REPORT INFORMATION
  Report Type: 
  Country: None (occurrence: None)
  Receive Date: 20041025
  Receipt Date: 20041014
  Transmission Date: 20050328
  Serious: Yes (Death, Life-Threatening, Hospitalization)
  Sender: FDA-Public Use
  Company Number: DE-2004-033534

PATIENT
  Age: 59 Year
  Sex: Female
  Weight: 60 kg

DRUGS (10)
  1. CAMPATH [Suspect]
     Indication: T-CELL LYMPHOMA
     Dosage: 10-30 MG DAYS 1, 2 + 3 PER CYCLE; INTRAVENOUS (SEE IMAGE)
     Route: 042
     Dates: start: 20040801, end: 20040912
  2. DOXORUBICIN HCL [Suspect]
     Indication: T-CELL LYMPHOMA
     Dosage: 50 MG/M2 ON DAY 3 PER CYCLE; INTRAVENOUS (SEE IMAGE
     Route: 042
     Dates: start: 20040801, end: 20040912
  3. FLUDARA [Suspect]
     Indication: T-CELL LYMPHOMA
     Dosage: 25 MG/M2, DAY 1, 2 +3 PER CYCLES; UNK (SEE IMAGE)
     Route: 065
     Dates: start: 20040801, end: 20040912
  4. CYCLOPHOSPHAMIDE [Suspect]
     Indication: T-CELL LYMPHOMA
     Dosage: 600 MG/M2, ON DAY 2 PER CYCLE; UNK (SEE IMAGE)
     Route: 065
     Dates: start: 20040801, end: 20040912
  5. PANTOPRAZOLE [Concomitant]
  6. NEUPOGEN [Concomitant]
  7. LIQUEMINE (HEPARIN SODIUM) [Concomitant]
  8. PENTAMIDINE [Concomitant]
  9. ATOSIL (ISOPROMETHAZINE HYDROCHLORIDE) [Concomitant]
  10. CORTISONE [Concomitant]

REACTIONS (9)
  - CARDIAC FAILURE [None]
  - CARDIOTOXICITY [None]
  - DISEASE PROGRESSION [None]
  - HAEMODIALYSIS [None]
  - NEOPLASM RECURRENCE [None]
  - PANIC ATTACK [None]
  - RESPIRATORY FAILURE [None]
  - T-CELL LYMPHOMA [None]
  - TRANSFUSION REACTION [None]
